FAERS Safety Report 5455356-8 (Version None)
Quarter: 2007Q3

REPORT INFORMATION
  Report Type: 
  Country: None (occurrence: None)
  Receive Date: 20070918
  Receipt Date: 20070914
  Transmission Date: 20080115
  Serious: Yes (Hospitalization)
  Sender: FDA-Public Use
  Company Number: JP-BRISTOL-MYERS SQUIBB COMPANY-13841317

PATIENT
  Age: 66 Year
  Sex: Male

DRUGS (3)
  1. PARAPLATIN [Suspect]
     Indication: BLADDER CANCER
     Route: 041
     Dates: start: 20050601, end: 20050601
  2. GEMZAR [Concomitant]
     Route: 042
     Dates: start: 20050601
  3. TAXOTERE [Concomitant]
     Route: 042
     Dates: start: 20050601

REACTIONS (3)
  - ALTERED STATE OF CONSCIOUSNESS [None]
  - HYPONATRAEMIA [None]
  - RENAL TUBULAR DISORDER [None]
